FAERS Safety Report 9782803 (Version 1)
Quarter: 2013Q4

REPORT INFORMATION
  Report Type: Spontaneous
  Country: KR (occurrence: None)
  Receive Date: 20131220
  Receipt Date: 20131220
  Transmission Date: 20140711
  Serious: Yes (Other)
  Sender: FDA-Public Use
  Company Number: C-13-107

PATIENT
  Age: 75 Year
  Sex: Female

DRUGS (3)
  1. OXYCODONE [Suspect]
     Indication: PROCEDURAL PAIN
     Route: 048
  2. PREGABALIN 150 MG [Concomitant]
  3. CELECOXIB 400 MG [Concomitant]

REACTIONS (2)
  - Serotonin syndrome [None]
  - Drug interaction [None]
